FAERS Safety Report 16895721 (Version 1)
Quarter: 2019Q4

REPORT INFORMATION
  Report Type: Spontaneous
  Country: US (occurrence: US)
  Receive Date: 20190814
  Receipt Date: 20190814
  Transmission Date: 20200122
  Serious: No
  Sender: FDA-Public Use
  Company Number: None

PATIENT

DRUGS (2)
  1. 300MG EXTENDED PHENYTOIN CAPSULES [Suspect]
     Active Substance: PHENYTOIN
  2. 100MG PHENYTOIN CAPSULES [Suspect]
     Active Substance: PHENYTOIN

REACTIONS (9)
  - Gastric haemorrhage [None]
  - Haematoma [None]
  - Vertigo [None]
  - Tremor [None]
  - International normalised ratio abnormal [None]
  - Toxicity to various agents [None]
  - Asthenia [None]
  - Incorrect dose administered [None]
  - Product dispensing error [None]

NARRATIVE: CASE EVENT DATE: 2019
